FAERS Safety Report 22909140 (Version 2)
Quarter: 2024Q1

REPORT INFORMATION
  Report Type: Report from Study
  Country: BR (occurrence: BR)
  Receive Date: 20230906
  Receipt Date: 20240105
  Transmission Date: 20240409
  Serious: Yes (Hospitalization, Other)
  Sender: FDA-Public Use
  Company Number: BR-CELLTRION INC.-2023BR005933

PATIENT

DRUGS (6)
  1. INFLIXIMAB [Suspect]
     Active Substance: INFLIXIMAB
     Indication: Crohn^s disease
     Dosage: 3 AMPOULES EVERY 2 MONTHS
     Route: 042
     Dates: start: 20220811
  2. INFLIXIMAB [Suspect]
     Active Substance: INFLIXIMAB
     Dosage: UNK
     Route: 042
     Dates: start: 20220711
  3. INFLIXIMAB [Suspect]
     Active Substance: INFLIXIMAB
     Dosage: UNK
     Dates: start: 202305
  4. INFLIXIMAB [Suspect]
     Active Substance: INFLIXIMAB
     Dosage: UNK
     Dates: start: 20231027
  5. SULFAMETHAZINE [Concomitant]
     Active Substance: SULFAMETHAZINE
     Dosage: UNK; 3 TIMES A DAY
     Route: 065
  6. AZATHIOPRINE [Concomitant]
     Active Substance: AZATHIOPRINE
     Dosage: UNK; 3 TIMES A DAY
     Route: 065

REACTIONS (6)
  - Crohn^s disease [Not Recovered/Not Resolved]
  - Rhinitis [Recovered/Resolved]
  - Sinusitis [Recovered/Resolved]
  - Illness [Unknown]
  - Influenza [Recovered/Resolved]
  - Intentional dose omission [Unknown]
